FAERS Safety Report 20549712 (Version 1)
Quarter: 2022Q1

REPORT INFORMATION
  Report Type: Spontaneous
  Country: FR (occurrence: FR)
  Receive Date: 20220304
  Receipt Date: 20220304
  Transmission Date: 20220423
  Serious: Yes (Congenital Anomaly, Other)
  Sender: FDA-Public Use
  Company Number: FR-ABBVIE-22K-056-4299770-00

PATIENT
  Sex: Female
  Weight: 3.51 kg

DRUGS (1)
  1. VALPROIC ACID [Suspect]
     Active Substance: VALPROIC ACID
     Indication: Maternal exposure timing unspecified
     Route: 064

REACTIONS (6)
  - Foetal anticonvulsant syndrome [Not Recovered/Not Resolved]
  - Learning disability [Not Recovered/Not Resolved]
  - Brachydactyly [Not Recovered/Not Resolved]
  - Dysmorphism [Not Recovered/Not Resolved]
  - Disturbance in attention [Not Recovered/Not Resolved]
  - Foetal exposure during pregnancy [Unknown]

NARRATIVE: CASE EVENT DATE: 19910518
